FAERS Safety Report 23347060 (Version 5)
Quarter: 2024Q4

REPORT INFORMATION
  Report Type: Spontaneous
  Country: US (occurrence: US)
  Receive Date: 20231228
  Receipt Date: 20241209
  Transmission Date: 20250114
  Serious: No
  Sender: PFIZER
  Company Number: US-PFIZER INC-202300358256

PATIENT
  Age: 73 Year
  Sex: Female
  Weight: 56.7 kg

DRUGS (6)
  1. ESTRING [Suspect]
     Active Substance: ESTRADIOL
     Indication: Insomnia
     Dosage: UNK, EVERY 3 MONTHS
     Dates: start: 20230906, end: 202311
  2. ESTRING [Suspect]
     Active Substance: ESTRADIOL
     Indication: Palpitations
  3. ESTRING [Suspect]
     Active Substance: ESTRADIOL
     Indication: Hyperhidrosis
  4. ESTRING [Suspect]
     Active Substance: ESTRADIOL
     Indication: Skin disorder
  5. ESTRING [Suspect]
     Active Substance: ESTRADIOL
     Indication: Dry skin
  6. ESTRING [Suspect]
     Active Substance: ESTRADIOL
     Indication: Mood swings

REACTIONS (2)
  - Off label use [Unknown]
  - Drug effective for unapproved indication [Unknown]

NARRATIVE: CASE EVENT DATE: 20230906
